FAERS Safety Report 12160761 (Version 5)
Quarter: 2016Q2

REPORT INFORMATION
  Report Type: Report from Study
  Country: BR (occurrence: BR)
  Receive Date: 20160308
  Receipt Date: 20160616
  Transmission Date: 20160815
  Serious: Yes (Death, Life-Threatening, Hospitalization, Other)
  Sender: FDA-Public Use
  Company Number: BR-GILEAD-2016-0201948

PATIENT
  Age: 49 Year
  Sex: Male
  Weight: 68 kg

DRUGS (2)
  1. EFAVIRENZ [Suspect]
     Active Substance: EFAVIRENZ
     Indication: HIV INFECTION
     Dosage: 600 MG, QD
     Route: 048
     Dates: start: 20151017, end: 20160219
  2. EMTRICITABINE/TENOFOVIR DISOPROXIL FUMARATE [Suspect]
     Active Substance: EMTRICITABINE\TENOFOVIR DISOPROXIL
     Indication: HIV INFECTION
     Dosage: 1 DF, QD
     Route: 048
     Dates: start: 20151017, end: 20160219

REACTIONS (2)
  - Multiple organ dysfunction syndrome [Unknown]
  - Hepatic failure [Fatal]

NARRATIVE: CASE EVENT DATE: 201602
